FAERS Safety Report 7600074-0 (Version None)
Quarter: 2011Q3

REPORT INFORMATION
  Report Type: 
  Country: None (occurrence: None)
  Receive Date: 20110711
  Receipt Date: 20110629
  Transmission Date: 20111222
  Serious: Yes (Hospitalization)
  Sender: FDA-Public Use
  Company Number: JP-JNJFOC-20110505685

PATIENT
  Sex: Female
  Weight: 63 kg

DRUGS (15)
  1. REMICADE [Suspect]
     Dosage: 8TH INFUSION
     Route: 042
     Dates: start: 20110125
  2. REMICADE [Suspect]
     Indication: RHEUMATOID ARTHRITIS
     Dosage: 7TH DOSE OF INFLIXIMAB
     Route: 042
  3. METHOTREXATE [Suspect]
     Indication: RHEUMATOID ARTHRITIS
     Dosage: DOSE 8 MG/WEEK ON MONDAY MORNINGS AND EVENINGS
     Route: 048
     Dates: start: 20100902
  4. PREDNISOLONE [Suspect]
     Indication: RHEUMATOID ARTHRITIS
     Route: 048
     Dates: start: 20100902
  5. FOLIC ACID [Concomitant]
     Route: 048
  6. ACTONEL [Concomitant]
     Route: 048
  7. PYDOXAL [Concomitant]
     Route: 048
  8. MUCOSTA [Concomitant]
     Route: 048
  9. NORVASC [Concomitant]
     Route: 048
  10. AZULFIDINE [Concomitant]
     Route: 048
  11. REMICADE [Suspect]
     Route: 042
     Dates: start: 20100309
  12. DIOVAN [Concomitant]
     Route: 048
  13. RIMATIL [Concomitant]
     Route: 048
  14. LOXONIN [Concomitant]
     Route: 048
  15. LORCAM [Concomitant]
     Route: 048

REACTIONS (2)
  - PERITONEAL TUBERCULOSIS [None]
  - UPPER RESPIRATORY TRACT INFLAMMATION [None]
